FAERS Safety Report 18017160 (Version 1)
Quarter: 2020Q3

REPORT INFORMATION
  Report Type: Spontaneous
  Country: US (occurrence: US)
  Receive Date: 20200713
  Receipt Date: 20200713
  Transmission Date: 20201103
  Serious: Yes (Other)
  Sender: FDA-Public Use
  Company Number: US-ALKERMES INC.-ALK-2020-002818

PATIENT
  Age: 59 Year
  Sex: Female
  Weight: 61.22 kg

DRUGS (4)
  1. HYDROCODONE [Concomitant]
     Active Substance: HYDROCODONE
     Indication: PRODUCT USED FOR UNKNOWN INDICATION
     Dosage: 2 DOSAGE FORM, QMO
  2. OTHER THERAPEUTIC PRODUCTS [Concomitant]
     Active Substance: UNSPECIFIED INGREDIENT
     Indication: PRODUCT USED FOR UNKNOWN INDICATION
  3. OTHER THERAPEUTIC PRODUCTS [Concomitant]
     Active Substance: UNSPECIFIED INGREDIENT
     Indication: PRODUCT USED FOR UNKNOWN INDICATION
     Dosage: UNK
  4. VIVITROL [Suspect]
     Active Substance: NALTREXONE
     Indication: ALCOHOLISM
     Dosage: 380 MILLIGRAM, QMO
     Route: 030
     Dates: start: 20200619

REACTIONS (8)
  - Pain in extremity [Not Recovered/Not Resolved]
  - Knee arthroplasty [Unknown]
  - Wrong technique in product usage process [Recovered/Resolved]
  - Injection site reaction [Recovered/Resolved]
  - Injection site mass [Recovered/Resolved]
  - Therapeutic response shortened [Unknown]
  - Injection site discomfort [Recovered/Resolved]
  - Tooth disorder [Unknown]

NARRATIVE: CASE EVENT DATE: 2020
